FAERS Safety Report 21379026 (Version 2)
Quarter: 2022Q4

REPORT INFORMATION
  Report Type: Spontaneous
  Country: US (occurrence: US)
  Receive Date: 20220927
  Receipt Date: 20221026
  Transmission Date: 20230113
  Serious: Yes (Hospitalization, Other)
  Sender: FDA-Public Use
  Company Number: US-CLOVIS ONCOLOGY-CLO-2022-001063

PATIENT
  Sex: Female

DRUGS (1)
  1. RUBRACA [Suspect]
     Active Substance: RUCAPARIB CAMSYLATE
     Indication: Ovarian cancer
     Dosage: 300 MILLIGRAM, BID
     Dates: end: 202209

REACTIONS (5)
  - Pneumonia necrotising [Unknown]
  - Full blood count abnormal [Unknown]
  - Myelodysplastic syndrome [Unknown]
  - Platelet count decreased [Unknown]
  - Anaemia [Unknown]
